FAERS Safety Report 22694266 (Version 4)
Quarter: 2023Q4

REPORT INFORMATION
  Report Type: Report from Study
  Country: CA (occurrence: CA)
  Receive Date: 20230711
  Receipt Date: 20231231
  Transmission Date: 20240110
  Serious: Yes (Hospitalization, Other)
  Sender: FDA-Public Use
  Company Number: CA-JNJFOC-20230704848

PATIENT
  Age: 58 Year
  Sex: Female

DRUGS (1)
  1. SIMPONI [Suspect]
     Active Substance: GOLIMUMAB
     Indication: Rheumatoid arthritis
     Route: 058
     Dates: start: 20210413

REACTIONS (13)
  - Peripancreatic varices [Unknown]
  - Adrenocortical insufficiency acute [Unknown]
  - Spinal fracture [Unknown]
  - Rheumatoid arthritis [Not Recovered/Not Resolved]
  - Ligament sprain [Unknown]
  - Bursitis [Unknown]
  - Compression fracture [Unknown]
  - Hepatic vein dilatation [Unknown]
  - Gastroenteritis viral [Unknown]
  - Back injury [Unknown]
  - COVID-19 [Unknown]
  - Depression [Unknown]
  - Chest X-ray abnormal [Unknown]

NARRATIVE: CASE EVENT DATE: 20230101
